FAERS Safety Report 16251206 (Version 8)
Quarter: 2021Q1

REPORT INFORMATION
  Report Type: Spontaneous
  Country: US (occurrence: US)
  Receive Date: 20190429
  Receipt Date: 20210315
  Transmission Date: 20210419
  Serious: Yes (Other)
  Sender: FDA-Public Use
  Company Number: US-PFIZER INC-2018381612

PATIENT
  Age: 58 Year
  Sex: Female
  Weight: 77 kg

DRUGS (6)
  1. LYRICA [Suspect]
     Active Substance: PREGABALIN
     Indication: FIBROMYALGIA
  2. LYRICA [Suspect]
     Active Substance: PREGABALIN
     Indication: NEURALGIA
     Dosage: 600 MG, 4X/DAY(MOUTH ONE EVERY 6 HOURS)
     Route: 048
     Dates: start: 2011
  3. LYRICA [Suspect]
     Active Substance: PREGABALIN
     Indication: MIGRAINE WITHOUT AURA
     Dosage: 150 MG, 4X/DAY
     Route: 048
     Dates: start: 20180914
  4. LYRICA [Suspect]
     Active Substance: PREGABALIN
     Indication: DIABETIC NEUROPATHY
     Dosage: 150 MG, 4X/DAY
     Route: 048
     Dates: start: 20190418
  5. LYRICA [Suspect]
     Active Substance: PREGABALIN
     Indication: NEUROPATHY PERIPHERAL
  6. OXYCODONE [Suspect]
     Active Substance: OXYCODONE
     Indication: PAIN
     Dosage: UNK

REACTIONS (14)
  - Cervical spinal stenosis [Unknown]
  - Nausea [Unknown]
  - Memory impairment [Unknown]
  - Vertigo [Unknown]
  - Migraine [Not Recovered/Not Resolved]
  - Weight increased [Unknown]
  - Muscular weakness [Unknown]
  - Ear discomfort [Unknown]
  - Headache [Not Recovered/Not Resolved]
  - Overdose [Unknown]
  - Sensitivity to weather change [Unknown]
  - Hypoaesthesia [Unknown]
  - Drug ineffective [Unknown]
  - Photophobia [Unknown]

NARRATIVE: CASE EVENT DATE: 2011
